FAERS Safety Report 18890876 (Version 2)
Quarter: 2021Q1

REPORT INFORMATION
  Report Type: Spontaneous
  Country: US (occurrence: US)
  Receive Date: 20210215
  Receipt Date: 20210215
  Transmission Date: 20210420
  Serious: Yes (Other)
  Sender: FDA-Public Use
  Company Number: US-BIOVITRUM-2021US1418

PATIENT
  Sex: Male
  Weight: 6 kg

DRUGS (6)
  1. ASPIRIN. [Concomitant]
     Active Substance: ASPIRIN
  2. MULTIVITAMIN [Concomitant]
     Active Substance: VITAMINS
  3. GERBER GOOD START GENT 2.1 G/1 [Concomitant]
  4. SYNAGIS [Suspect]
     Active Substance: PALIVIZUMAB
     Indication: HYPOTHYROIDISM
  5. SYNAGIS [Suspect]
     Active Substance: PALIVIZUMAB
     Indication: CARDIAC DISORDER
  6. SYNAGIS [Suspect]
     Active Substance: PALIVIZUMAB
     Indication: DEPENDENCE ON OXYGEN THERAPY
     Dosage: SYNAGIS 50MG/0.5ML VL LIQUID
     Route: 030

REACTIONS (4)
  - Off label use [Unknown]
  - COVID-19 [Unknown]
  - Eating disorder [Unknown]
  - Weight gain poor [Unknown]
